FAERS Safety Report 11190198 (Version 1)
Quarter: 2015Q2

REPORT INFORMATION
  Report Type: Spontaneous
  Country: US (occurrence: None)
  Receive Date: 20150612
  Receipt Date: 20150612
  Transmission Date: 20150821
  Serious: No
  Sender: FDA-Public Use
  Company Number: None

PATIENT
  Age: 66 Year
  Sex: Male
  Weight: 120.2 kg

DRUGS (12)
  1. TAMSULOSIN [Concomitant]
     Active Substance: TAMSULOSIN
  2. VIT-D [Concomitant]
  3. METROPOLOL [Concomitant]
     Active Substance: METOPROLOL
  4. ASPIRIN. [Concomitant]
     Active Substance: ASPIRIN
  5. TAMSULOSIN HCL 0.4 MG [Suspect]
     Active Substance: TAMSULOSIN
     Indication: NOCTURIA
     Route: 048
     Dates: start: 20150227, end: 20150610
  6. MULTI VITAMIN [Concomitant]
     Active Substance: VITAMINS
  7. METFORMIN [Concomitant]
     Active Substance: METFORMIN HYDROCHLORIDE
  8. LANTUS [Concomitant]
     Active Substance: INSULIN GLARGINE
  9. ATORVASTATIN [Concomitant]
     Active Substance: ATORVASTATIN
  10. VIAGRA [Concomitant]
     Active Substance: SILDENAFIL CITRATE
  11. LOSARTIN [Concomitant]
     Active Substance: LOSARTAN
  12. OXYBUTYMIN CHLORIDE [Concomitant]

REACTIONS (1)
  - Ejaculation disorder [None]
